FAERS Safety Report 5443259-4 (Version None)
Quarter: 2007Q3

REPORT INFORMATION
  Report Type: 
  Country: None (occurrence: None)
  Receive Date: 20070830
  Receipt Date: 20070828
  Transmission Date: 20080115
  Serious: Yes (Death, Hospitalization)
  Sender: FDA-Public Use
  Company Number: 2007SP015969

PATIENT
  Age: 62 Year
  Sex: Female

DRUGS (3)
  1. TEMODAL [Suspect]
     Indication: GLIOBLASTOMA
     Dosage: ;PO
     Route: 048
     Dates: start: 20070516, end: 20070516
  2. METHOTREXATE [Suspect]
     Indication: GLIOBLASTOMA
     Dosage: ;INTH
     Route: 037
     Dates: start: 20070516, end: 20070516
  3. AUGMENTIN '200' [Suspect]
     Indication: DRUG USE FOR UNKNOWN INDICATION
     Dosage: ; IV
     Route: 042
     Dates: start: 20070513, end: 20070521

REACTIONS (5)
  - BONE MARROW FAILURE [None]
  - CIRCULATORY COLLAPSE [None]
  - RESPIRATORY DISTRESS [None]
  - SEPSIS [None]
  - STEVENS-JOHNSON SYNDROME [None]
